FAERS Safety Report 25213956 (Version 2)
Quarter: 2025Q2

REPORT INFORMATION
  Report Type: Spontaneous
  Country: JP (occurrence: JP)
  Receive Date: 20250418
  Receipt Date: 20250422
  Transmission Date: 20250717
  Serious: Yes (Hospitalization, Other)
  Sender: MERCK SHARP & DOHME LLC
  Company Number: JP-009507513-2260239

PATIENT
  Age: 9 Decade
  Sex: Male

DRUGS (1)
  1. NOXAFIL [Suspect]
     Active Substance: POSACONAZOLE
     Indication: Antifungal prophylaxis
     Route: 048
     Dates: start: 202303

REACTIONS (18)
  - Diabetes mellitus [Unknown]
  - Hypertension [Unknown]
  - Electrocardiogram QT prolonged [Recovered/Resolved]
  - Angina pectoris [Unknown]
  - Heart failure with reduced ejection fraction [Unknown]
  - Erosive oesophagitis [Unknown]
  - Febrile neutropenia [Unknown]
  - Constipation [Unknown]
  - Syncope [Unknown]
  - Cardiac failure chronic [Unknown]
  - Ventricular fibrillation [Recovered/Resolved]
  - Dyslipidaemia [Unknown]
  - Pleural effusion [Unknown]
  - Benign prostatic hyperplasia [Unknown]
  - Ventricular tachycardia [Unknown]
  - Hypertonic bladder [Unknown]
  - Syncope [Unknown]
  - Ventricular extrasystoles [Unknown]

NARRATIVE: CASE EVENT DATE: 20231001
